FAERS Safety Report 14208604 (Version 1)
Quarter: 2017Q4

REPORT INFORMATION
  Report Type: Spontaneous
  Country: US (occurrence: US)
  Receive Date: 20171121
  Receipt Date: 20171121
  Transmission Date: 20180321
  Serious: Yes (Hospitalization)
  Sender: FDA-Public Use
  Company Number: US-VERTEX PHARMACEUTICALS-2017-006404

PATIENT
  Age: 33 Year
  Sex: Male

DRUGS (7)
  1. ZENPEP [Concomitant]
     Active Substance: PANCRELIPASE AMYLASE\PANCRELIPASE LIPASE\PANCRELIPASE PROTEASE
     Dosage: UNK
     Route: 048
  2. BOOST [Concomitant]
     Active Substance: DIETARY SUPPLEMENT
     Dosage: UNK
  3. VITAMIN D                          /00107901/ [Concomitant]
     Active Substance: ERGOCALCIFEROL
  4. PULMOZYME [Concomitant]
     Active Substance: DORNASE ALFA
     Dosage: UNK
     Route: 055
  5. FOLIC ACID. [Concomitant]
     Active Substance: FOLIC ACID
  6. ORKAMBI [Suspect]
     Active Substance: IVACAFTOR\LUMACAFTOR
     Indication: CYSTIC FIBROSIS
     Dosage: 2 DOSAGE FORM (200/125 MG EACH), BID
     Route: 048
     Dates: start: 20160225, end: 2016
  7. VITAMIN A                          /00056001/ [Concomitant]
     Active Substance: RETINOL

REACTIONS (2)
  - Intestinal obstruction [Unknown]
  - Pneumonia staphylococcal [Unknown]

NARRATIVE: CASE EVENT DATE: 20171101
